FAERS Safety Report 15454148 (Version 2)
Quarter: 2019Q2

REPORT INFORMATION
  Report Type: Report from Study
  Country: None (occurrence: US)
  Receive Date: 20181002
  Receipt Date: 20190515
  Transmission Date: 20190711
  Serious: Yes (Other)
  Sender: FDA-Public Use
  Company Number: US-ABBVIE-18K-163-2468647-00

PATIENT
  Sex: Female

DRUGS (2)
  1. HUMIRA [Suspect]
     Active Substance: ADALIMUMAB
     Indication: RHEUMATOID ARTHRITIS
     Dosage: HUMIRA CF PEN
     Route: 058
  2. HUMIRA [Suspect]
     Active Substance: ADALIMUMAB
     Indication: RHEUMATOID ARTHRITIS
     Route: 058
     Dates: start: 20180814, end: 201904

REACTIONS (11)
  - Musculoskeletal disorder [Recovering/Resolving]
  - Malaise [Recovering/Resolving]
  - Pyrexia [Unknown]
  - Peripheral swelling [Recovering/Resolving]
  - Pain [Unknown]
  - Swelling [Unknown]
  - Multiple fractures [Recovering/Resolving]
  - Musculoskeletal disorder [Unknown]
  - Fall [Recovering/Resolving]
  - Rheumatoid arthritis [Recovering/Resolving]
  - Infection [Recovering/Resolving]

NARRATIVE: CASE EVENT DATE: 2018
